FAERS Safety Report 9294087 (Version 1)
Quarter: 2013Q2

REPORT INFORMATION
  Report Type: Spontaneous
  Country: US (occurrence: None)
  Receive Date: 20130516
  Receipt Date: 20130516
  Transmission Date: 20140414
  Serious: No
  Sender: FDA-Public Use
  Company Number: None

PATIENT
  Age: 61 Year
  Sex: Female

DRUGS (3)
  1. AMOXICILLIN AND CLAVULANATE [Suspect]
     Indication: DIVERTICULITIS
     Dates: start: 20120109, end: 20120119
  2. TRIMETHOPRIM AND SULFAMETHOXAZOLE [Suspect]
     Indication: URINARY TRACT INFECTION
     Dates: start: 20120220, end: 20120224
  3. ESTROGEN RING [Concomitant]

REACTIONS (8)
  - Jaundice [None]
  - Cholestasis [None]
  - Pruritus [None]
  - Dyspepsia [None]
  - Hepatotoxicity [None]
  - Abdominal pain lower [None]
  - Nausea [None]
  - Chromaturia [None]
